FAERS Safety Report 9462241 (Version 1)
Quarter: 2013Q3

REPORT INFORMATION
  Report Type: Spontaneous
  Country: US (occurrence: None)
  Receive Date: 20130813
  Receipt Date: 20130813
  Transmission Date: 20140515
  Serious: Yes (Hospitalization)
  Sender: FDA-Public Use
  Company Number: SYM-2013-08283

PATIENT
  Age: 46 Year
  Sex: Male

DRUGS (1)
  1. XENAZINE (TETRABENAZINE) [Suspect]
     Indication: HUNTINGTON^S DISEASE
     Dosage: 37.5MG, 2 IN 1 D ORAL
     Route: 048
     Dates: start: 20130610

REACTIONS (2)
  - Pneumonia aspiration [None]
  - Urinary tract infection [None]
